FAERS Safety Report 10904378 (Version 1)
Quarter: 2015Q1

REPORT INFORMATION
  Report Type: Spontaneous
  Country: US (occurrence: None)
  Receive Date: 20150304
  Receipt Date: 20150304
  Transmission Date: 20150721
  Serious: No
  Sender: FDA-Public Use
  Company Number: None

PATIENT

DRUGS (3)
  1. DICLOFENAC [Suspect]
     Active Substance: DICLOFENAC
  2. PYROLA JOINT FORMULAT CAPSULE [Suspect]
     Active Substance: HERBALS
     Indication: ARTHRITIS
     Dosage: 60 TWICE DAILY BY MOUTH
     Route: 048
  3. PYROLA JOINT FORMULAT CAPSULE [Suspect]
     Active Substance: HERBALS
     Indication: ARTHRALGIA
     Dosage: 60 TWICE DAILY BY MOUTH
     Route: 048

REACTIONS (1)
  - Product formulation issue [None]

NARRATIVE: CASE EVENT DATE: 20150126
